FAERS Safety Report 23461026 (Version 1)
Quarter: 2024Q1

REPORT INFORMATION
  Report Type: Spontaneous
  Country: RU (occurrence: None)
  Receive Date: 20240131
  Receipt Date: 20240131
  Transmission Date: 20240410
  Serious: Yes (Other)
  Sender: FDA-Public Use
  Company Number: RU-ROCHE-3497762

PATIENT
  Age: 39 Year
  Sex: Female

DRUGS (4)
  1. TRASTUZUMAB [Suspect]
     Active Substance: TRASTUZUMAB
     Indication: Breast cancer
     Dosage: SUBSEQUENT DOSE ON 25/JUL/2023, 22/AUG/2023, 19/SEP/2023, 10/OCT/2023, 31/OCT/2023, 21/NOV/2023
     Route: 041
     Dates: start: 20230627
  2. PERJETA [Suspect]
     Active Substance: PERTUZUMAB
     Indication: Breast cancer
     Dosage: SUBSEQUENT DOSE ON 25/JUL/2023, 22/AUG/2023, 19/SEP/2023, 10/OCT/2023, 31/OCT/2023, 21/NOV/2023
     Route: 042
     Dates: start: 20230627
  3. DOCETAXEL [Suspect]
     Active Substance: DOCETAXEL\DOCETAXEL ANHYDROUS
     Indication: Breast cancer
     Dosage: SUBSEQUENT DOSE ON 25/JUL/2023, 22/AUG/2023, 19/SEP/2023, 10/OCT/2023, 31/OCT/2023, 21/NOV/2023
     Route: 042
     Dates: start: 20230627
  4. CARBOPLATIN [Suspect]
     Active Substance: CARBOPLATIN
     Indication: Breast cancer
     Dosage: SUBSEQUENT DOSE ON 25/JUL/2023, 22/AUG/2023, 19/SEP/2023, 10/OCT/2023, 31/OCT/2023, 21/NOV/2023
     Route: 042
     Dates: start: 20230627

REACTIONS (19)
  - Leukopenia [Unknown]
  - Neutropenia [Unknown]
  - Nephrolithiasis [Unknown]
  - Mitral valve incompetence [Unknown]
  - Tricuspid valve incompetence [Unknown]
  - Pulmonary valve incompetence [Unknown]
  - Anaemia [Unknown]
  - Polyneuropathy [Unknown]
  - Diarrhoea [Unknown]
  - Asthenia [Unknown]
  - Nausea [Unknown]
  - Vomiting [Unknown]
  - Malaise [Unknown]
  - Lymphoid tissue hyperplasia [Unknown]
  - Lipomatosis [Unknown]
  - Fibrocystic breast disease [Unknown]
  - Renal cyst [Unknown]
  - Chronic gastritis [Unknown]
  - Calculus urinary [Unknown]
